FAERS Safety Report 4277789-8 (Version None)
Quarter: 2004Q1

REPORT INFORMATION
  Report Type: 
  Country: None (occurrence: None)
  Receive Date: 20040122
  Receipt Date: 20040122
  Transmission Date: 20041129
  Serious: Yes (Hospitalization)
  Sender: FDA-Public Use
  Company Number: None

PATIENT
  Sex: Male
  Weight: 84 kg

DRUGS (12)
  1. INTERLEUKIN 2 [Suspect]
     Indication: RENAL CANCER METASTATIC
     Dosage: 18 MIU M-F X 6 WEEKS SC
     Route: 058
     Dates: start: 20031113, end: 20031118
  2. THALIDOMIDE [Suspect]
     Indication: RENAL CANCER METASTATIC
     Dosage: 100 MG QD PO
     Route: 048
     Dates: start: 20031103, end: 20031118
  3. INTERLEUKIN 2 [Suspect]
     Indication: RENAL CANCER METASTATIC
     Dosage: 13.5 MIU M-F X 2 WEEKS SC
     Route: 058
     Dates: start: 20031201, end: 20031212
  4. THALIDOMIDE [Suspect]
     Indication: RENAL CANCER METASTATIC
     Dosage: 100 MG QD PO
     Route: 048
     Dates: start: 20031201, end: 20031231
  5. INTERLEUKIN 2 [Suspect]
     Indication: RENAL CANCER METASTATIC
     Dosage: 13.5 MIU M-F X 6 WEEKS CS
     Route: 058
     Dates: start: 20040105, end: 20040116
  6. BEXTRA [Concomitant]
  7. ZYRTEC [Concomitant]
  8. CLARITIN [Concomitant]
  9. PERCOCET [Concomitant]
  10. PEPCID [Concomitant]
  11. COZAAR [Concomitant]
  12. ZOCOR [Concomitant]

REACTIONS (7)
  - BLOOD CREATININE ABNORMAL [None]
  - BLOOD PRESSURE SYSTOLIC DECREASED [None]
  - CEREBRAL ISCHAEMIA [None]
  - DIZZINESS [None]
  - ELECTROCARDIOGRAM QT CORRECTED INTERVAL PROLONGED [None]
  - HEART RATE INCREASED [None]
  - RESPIRATORY RATE INCREASED [None]
